FAERS Safety Report 8836427 (Version 4)
Quarter: 2012Q4

REPORT INFORMATION
  Report Type: 
  Country: US (occurrence: US)
  Receive Date: 20121011
  Receipt Date: 20121210
  Transmission Date: 20130627
  Serious: Yes (Other)
  Sender: FDA-Public Use
  Company Number: US-ASTRAZENECA-2012SE76626

PATIENT
  Age: 21 Year
  Sex: Female

DRUGS (5)
  1. SEROQUEL [Suspect]
     Route: 048
  2. SEROQUEL [Suspect]
     Route: 048
  3. SEROQUEL [Suspect]
     Dosage: CUTS THE SEROQUEL 200 MG TABLET INTO 4 PIECES AND TAKES IT SEPARATELY
     Route: 048
  4. SEROQUEL [Suspect]
     Dosage: GENERIC
     Route: 048
  5. SEROQUEL [Suspect]
     Route: 048

REACTIONS (5)
  - Feeling abnormal [Unknown]
  - Drug intolerance [Unknown]
  - Intentional drug misuse [Unknown]
  - Drug ineffective [Unknown]
  - Drug dose omission [Unknown]
